FAERS Safety Report 25643547 (Version 1)
Quarter: 2025Q3

REPORT INFORMATION
  Report Type: Report from Study
  Country: US (occurrence: US)
  Receive Date: 20250805
  Receipt Date: 20250805
  Transmission Date: 20251021
  Serious: Yes (Hospitalization, Other)
  Sender: ABBVIE
  Company Number: US-ABBVIE-6400032

PATIENT
  Sex: Male

DRUGS (2)
  1. IMBRUVICA [Suspect]
     Active Substance: IBRUTINIB
     Indication: Benign prostatic hyperplasia
     Dosage: MISSED DOSE
     Route: 048
     Dates: start: 20220303
  2. IMBRUVICA [Suspect]
     Active Substance: IBRUTINIB
     Indication: Benign prostatic hyperplasia
     Route: 048

REACTIONS (2)
  - Colectomy [Unknown]
  - Depression [Unknown]
